FAERS Safety Report 6228111-9 (Version None)
Quarter: 2009Q2

REPORT INFORMATION
  Report Type: 
  Country: None (occurrence: None)
  Receive Date: 20090612
  Receipt Date: 20090609
  Transmission Date: 20091009
  Serious: Yes (Death, Hospitalization)
  Sender: FDA-Public Use
  Company Number: US-JNJFOC-20090603097

PATIENT
  Age: 74 Year
  Sex: Female
  Weight: 78 kg

DRUGS (20)
  1. DOXORUBICIN HCL [Suspect]
     Dosage: CYCLE 5, TOTAL DOSE ADMINISTERED 69 MG
     Route: 042
  2. DOXORUBICIN HCL [Suspect]
     Indication: DIFFUSE LARGE B-CELL LYMPHOMA
     Dosage: CYCLE 1, TOTAL DOSE 69MG
     Route: 042
  3. CYCLOPHOSPHAMIDE [Suspect]
     Dosage: CYCLE 5, TOTAL DOSE ADMINISTERED 1298 MG
     Route: 042
  4. CYCLOPHOSPHAMIDE [Suspect]
     Indication: DIFFUSE LARGE B-CELL LYMPHOMA
     Dosage: CYCLE 1, TOTAL DOSE 1298MG
     Route: 042
  5. RITUXIMAB [Suspect]
     Dosage: CYCLE 2, TOTAL DOSE ADMINISTERED 649 MG
     Route: 042
  6. RITUXIMAB [Suspect]
     Indication: DIFFUSE LARGE B-CELL LYMPHOMA
     Dosage: CYCLE 1, TOTAL DOSE 649MG
     Route: 042
  7. KETOROLAC TROMETHAMINE [Concomitant]
     Route: 065
  8. ALISKIREN [Concomitant]
     Route: 065
  9. AMLODIPINE [Concomitant]
     Route: 065
  10. BRINZOLAMIDE [Concomitant]
     Route: 065
  11. DARVON [Concomitant]
     Route: 065
  12. INSULIN GLARGINE [Concomitant]
     Route: 065
  13. INSULIN LISPRO [Concomitant]
     Route: 065
  14. LEVOTHYROXINE [Concomitant]
     Route: 065
  15. LISINOPRIL [Concomitant]
     Route: 065
  16. LOVASTATIN [Concomitant]
     Route: 065
  17. MAALOX /00091001/ [Concomitant]
     Route: 065
  18. METFORMIN HYDROCHLORIDE [Concomitant]
     Route: 065
  19. OMEPRAZOLE [Concomitant]
     Route: 065
  20. OXYBUTYNIN CHLORIDE [Concomitant]
     Route: 065

REACTIONS (12)
  - ANOREXIA [None]
  - BLOOD CREATININE ABNORMAL [None]
  - CONFUSIONAL STATE [None]
  - CONVULSION [None]
  - CYSTITIS [None]
  - HAEMOGLOBIN DECREASED [None]
  - HYPOXIA [None]
  - MULTI-ORGAN FAILURE [None]
  - PLATELET DISORDER [None]
  - PNEUMONITIS [None]
  - RENAL FAILURE [None]
  - WHITE BLOOD CELL DISORDER [None]
